FAERS Safety Report 18732939 (Version 3)
Quarter: 2022Q3

REPORT INFORMATION
  Report Type: Other
  Country: US (occurrence: None)
  Receive Date: 20210113
  Receipt Date: 20220714
  Transmission Date: 20221026
  Serious: Yes (Hospitalization)
  Sender: FDA-Public Use
  Company Number: US-ROCHE-2644976

PATIENT
  Sex: Female
  Weight: 56.750 kg

DRUGS (14)
  1. OCREVUS [Suspect]
     Active Substance: OCRELIZUMAB
     Indication: Primary progressive multiple sclerosis
     Route: 042
     Dates: start: 2017
  2. OCREVUS [Suspect]
     Active Substance: OCRELIZUMAB
     Indication: Relapsing multiple sclerosis
     Route: 042
     Dates: start: 20190129
  3. OCREVUS [Suspect]
     Active Substance: OCRELIZUMAB
     Indication: Multiple sclerosis
     Dosage: ON DAY 1 FOLLOWED BY 14 DAYS LATER
     Route: 042
  4. OCREVUS [Suspect]
     Active Substance: OCRELIZUMAB
     Route: 042
  5. TIZANIDINE [Concomitant]
     Active Substance: TIZANIDINE
     Indication: Muscle spasticity
     Dosage: 2 DOSES ORALLY; 2 DOSES VIA G-TUBE ;ONGOING: YES
     Dates: start: 1999
  6. BACLOFEN [Concomitant]
     Active Substance: BACLOFEN
     Indication: Muscle spasticity
     Dosage: 2 DOSES ORALLY; 2 DOSES VIA G-TUBE ;ONGOING: YES
     Dates: start: 1999
  7. GABAPENTIN [Concomitant]
     Active Substance: GABAPENTIN
     Indication: Neuralgia
     Dosage: G-TUBE ;ONGOING: YES
     Dates: start: 1999
  8. OXYBUTYNIN [Concomitant]
     Active Substance: OXYBUTYNIN
     Indication: Micturition urgency
     Route: 048
     Dates: start: 1999
  9. CITALOPRAM [Concomitant]
     Active Substance: CITALOPRAM HYDROBROMIDE
     Indication: Anxiety
     Dosage: G-TUBE ;ONGOING: YES
     Dates: start: 2015
  10. LORAZEPAM [Concomitant]
     Active Substance: LORAZEPAM
     Indication: Anxiety
     Dosage: G-TUBE ;ONGOING: YES
     Dates: start: 2020
  11. VITAMINS [Concomitant]
     Active Substance: VITAMINS
     Dosage: G-TUBE; TIME RELEASE TABLET ;ONGOING: YES
     Dates: start: 1999
  12. COENZYME Q10 [Concomitant]
     Active Substance: DIETARY SUPPLEMENT\UBIDECARENONE
     Dosage: G-TUBE ;ONGOING: YES
     Dates: start: 2014
  13. VITAMIN D3 [Concomitant]
     Active Substance: CHOLECALCIFEROL
     Dosage: G-TUBE ;ONGOING: YES
     Dates: start: 2016
  14. MIRALAX [Concomitant]
     Active Substance: POLYETHYLENE GLYCOL 3350

REACTIONS (11)
  - Pneumonia [Recovered/Resolved]
  - Urinary tract infection [Recovered/Resolved]
  - Weight decreased [Recovered/Resolved]
  - Flushing [Recovered/Resolved]
  - Headache [Recovered/Resolved]
  - Abnormal sensation in eye [Not Recovered/Not Resolved]
  - Constipation [Unknown]
  - Vertigo [Recovered/Resolved]
  - COVID-19 [Recovering/Resolving]
  - Ill-defined disorder [Not Recovered/Not Resolved]
  - Decubitus ulcer [Unknown]

NARRATIVE: CASE EVENT DATE: 20170101
